FAERS Safety Report 13463410 (Version 1)
Quarter: 2017Q2

REPORT INFORMATION
  Report Type: Spontaneous
  Country: HR (occurrence: HR)
  Receive Date: 20170420
  Receipt Date: 20170420
  Transmission Date: 20170830
  Serious: Yes (Other)
  Sender: FDA-Public Use
  Company Number: HR-PFIZER INC-2017173693

PATIENT
  Age: 23 Year
  Sex: Female

DRUGS (1)
  1. DALACIN [Suspect]
     Active Substance: CLINDAMYCIN
     Indication: PULPITIS DENTAL

REACTIONS (3)
  - Throat irritation [Unknown]
  - Choking [Unknown]
  - Oesophageal pain [Unknown]
